FAERS Safety Report 6580276-5 (Version None)
Quarter: 2010Q1

REPORT INFORMATION
  Report Type: 
  Country: None (occurrence: None)
  Receive Date: 20100212
  Receipt Date: 20100204
  Transmission Date: 20100710
  Serious: Yes (Other)
  Sender: FDA-Public Use
  Company Number: BR-WYE-H13362810

PATIENT
  Sex: Female

DRUGS (4)
  1. PREMARIN [Suspect]
     Indication: HORMONE REPLACEMENT THERAPY
     Route: 048
     Dates: start: 20080201
  2. FENOFIBRATE [Concomitant]
     Indication: BLOOD CHOLESTEROL INCREASED
     Dosage: UNKNOWN DOSE, TABLET TAKEN DAILY
     Route: 048
  3. INSULIN [Concomitant]
     Indication: DIABETES MELLITUS
     Dosage: UNKNOWN INJECTABLE DOSE
     Route: 065
  4. CAPTOPRIL [Concomitant]
     Indication: HYPERTENSION
     Dosage: DOSE UNKNOWN, TABLET TAKEN ONCE DAILY
     Route: 048

REACTIONS (3)
  - FEELING HOT [None]
  - MALAISE [None]
  - RETINAL DETACHMENT [None]
